FAERS Safety Report 17300479 (Version 1)
Quarter: 2020Q1

REPORT INFORMATION
  Report Type: Spontaneous
  Country: US (occurrence: US)
  Receive Date: 20200122
  Receipt Date: 20200122
  Transmission Date: 20200409
  Serious: No
  Sender: FDA-Public Use
  Company Number: US-ALLERGAN-1941825US

PATIENT
  Age: 94 Year
  Sex: Female

DRUGS (2)
  1. RESTASIS [Suspect]
     Active Substance: CYCLOSPORINE
     Indication: DRY EYE
  2. RESTASIS [Suspect]
     Active Substance: CYCLOSPORINE
     Indication: MACULAR DEGENERATION
     Dosage: 2 GTT, QD
     Route: 047
     Dates: start: 201910

REACTIONS (3)
  - Off label use [Unknown]
  - Inappropriate schedule of product administration [Unknown]
  - Eye irritation [Not Recovered/Not Resolved]
